FAERS Safety Report 10960554 (Version 2)
Quarter: 2015Q3

REPORT INFORMATION
  Report Type: Spontaneous
  Country: BR (occurrence: BR)
  Receive Date: 20150327
  Receipt Date: 20150708
  Transmission Date: 20151125
  Serious: No
  Sender: FDA-Public Use
  Company Number: BR-PFIZER INC-2015105499

PATIENT
  Age: 63 Year
  Sex: Female

DRUGS (2)
  1. SUTENT [Suspect]
     Active Substance: SUNITINIB MALATE
     Indication: RENAL CELL CARCINOMA
     Dosage: 50 MG, ONCE DAILY, CYCLE 4X2
     Route: 048
     Dates: start: 20140509
  2. PREDNISONE. [Concomitant]
     Active Substance: PREDNISONE
     Dosage: STRENGTH 20MG
     Dates: start: 20140509

REACTIONS (9)
  - Aphthous ulcer [Unknown]
  - Malaise [Unknown]
  - Contusion [Unknown]
  - Diarrhoea [Unknown]
  - Ageusia [Unknown]
  - Platelet count decreased [Not Recovered/Not Resolved]
  - Decreased appetite [Unknown]
  - Alopecia [Unknown]
  - Dermatitis allergic [Unknown]
